FAERS Safety Report 6689050-2 (Version None)
Quarter: 2010Q2

REPORT INFORMATION
  Report Type: 
  Country: None (occurrence: None)
  Receive Date: 20100420
  Receipt Date: 20100419
  Transmission Date: 20101027
  Serious: Yes (Death)
  Sender: FDA-Public Use
  Company Number: AU-WYE-G05977510

PATIENT
  Sex: Male

DRUGS (1)
  1. TORISEL [Suspect]
     Indication: METASTATIC RENAL CELL CARCINOMA
     Dosage: UNKNOWN
     Dates: start: 20100122, end: 20100312

REACTIONS (1)
  - DEATH [None]
